FAERS Safety Report 13786837 (Version 1)
Quarter: 2017Q3

REPORT INFORMATION
  Report Type: Spontaneous
  Country: US (occurrence: US)
  Receive Date: 20170725
  Receipt Date: 20170725
  Transmission Date: 20171127
  Serious: No
  Sender: FDA-Public Use
  Company Number: None

PATIENT
  Age: 52 Year
  Sex: Female
  Weight: 96.75 kg

DRUGS (10)
  1. LECITHIN [Concomitant]
     Active Substance: LECITHIN
  2. DHEA [Concomitant]
     Active Substance: PRASTERONE
  3. MULTI [Concomitant]
  4. VITAMIN D3 [Concomitant]
     Active Substance: CHOLECALCIFEROL
  5. LEVOTHYROXINE. [Concomitant]
     Active Substance: LEVOTHYROXINE
  6. SIMVASTATIN. [Concomitant]
     Active Substance: SIMVASTATIN
  7. CALCIUM [Concomitant]
     Active Substance: CALCIUM
  8. FISH OIL [Concomitant]
     Active Substance: FISH OIL
  9. CO-Q10 [Concomitant]
  10. CONTRAVE [Suspect]
     Active Substance: BUPROPION HYDROCHLORIDE\NALTREXONE HYDROCHLORIDE
     Indication: WEIGHT DECREASED
     Dosage: ?          QUANTITY:2 TABLET(S);?
     Route: 048

REACTIONS (5)
  - Vomiting [None]
  - Dizziness [None]
  - Nausea [None]
  - Headache [None]
  - Dry mouth [None]

NARRATIVE: CASE EVENT DATE: 20170725
